FAERS Safety Report 15268943 (Version 3)
Quarter: 2018Q4

REPORT INFORMATION
  Report Type: Report from Study
  Country: IL (occurrence: IL)
  Receive Date: 20180813
  Receipt Date: 20180917
  Transmission Date: 20190204
  Serious: Yes (Death, Life-Threatening, Hospitalization)
  Sender: FDA-Public Use
  Company Number: IL-TEVA-2018-IL-937416

PATIENT
  Age: 82 Year
  Sex: Male
  Weight: 62.5 kg

DRUGS (26)
  1. MK-3475(PEMBROLIZUMAB) [Suspect]
     Active Substance: PEMBROLIZUMAB
     Route: 042
     Dates: start: 20180531, end: 20180531
  2. TARGIN [Concomitant]
     Active Substance: NALOXONE HYDROCHLORIDE\OXYCODONE HYDROCHLORIDE
     Dates: start: 20170516, end: 20180616
  3. PEMETREXED. [Suspect]
     Active Substance: PEMETREXED
     Dosage: 23.8095 MG/M2 DAILY;
     Route: 042
     Dates: start: 20180531, end: 20180531
  4. SLOW-K [Concomitant]
     Active Substance: POTASSIUM CHLORIDE
     Dates: start: 20180510
  5. LAXADIN [Concomitant]
     Active Substance: BISACODYL
     Dates: start: 20180516
  6. PRADAXA [Concomitant]
     Active Substance: DABIGATRAN ETEXILATE MESYLATE
     Dates: start: 20180511
  7. CARBOPLATIN. [Suspect]
     Active Substance: CARBOPLATIN
     Indication: NON-SMALL CELL LUNG CANCER METASTATIC
     Dosage: AUC 5
     Route: 042
     Dates: start: 20180228, end: 20180411
  8. CARBOPLATIN. [Suspect]
     Active Substance: CARBOPLATIN
     Dosage: AUC 5
     Route: 042
     Dates: start: 20180502, end: 20180502
  9. INCB024360 [Suspect]
     Active Substance: EPACADOSTAT
     Indication: NON-SMALL CELL LUNG CANCER METASTATIC
     Dosage: CODE NOT BROKEN
     Dates: start: 20180228, end: 20180421
  10. OPTALGIN [Concomitant]
     Active Substance: METAMIZOLE
     Dates: start: 201712
  11. AKYNZEO [Concomitant]
     Active Substance: NETUPITANT\PALONOSETRON HYDROCHLORIDE
     Dates: start: 20180531, end: 20180531
  12. SERETIDE [Concomitant]
     Active Substance: FLUTICASONE PROPIONATE\SALMETEROL XINAFOATE
     Dosage: 1 DOSAGE FORMS DAILY;
     Route: 065
     Dates: start: 200201
  13. ZOLEDRONIC ACID [Concomitant]
     Active Substance: ZOLEDRONIC ACID
     Dates: start: 20180603, end: 20180603
  14. INCB024360 [Suspect]
     Active Substance: EPACADOSTAT
     Dosage: CODE NOT BROKEN
     Dates: start: 20180422, end: 20180501
  15. FOLIC ACID. [Concomitant]
     Active Substance: FOLIC ACID
     Dates: start: 20180215
  16. PERCOCET [Concomitant]
     Active Substance: ACETAMINOPHEN\OXYCODONE HYDROCHLORIDE
     Dates: start: 20180510, end: 20180612
  17. MAGNESIUM DIASPORAL [Concomitant]
     Active Substance: MAGNESIUM
     Dates: start: 20180511
  18. DEXAMETHASONE. [Concomitant]
     Active Substance: DEXAMETHASONE
     Dates: start: 20180531, end: 20180531
  19. AEROVENT [Concomitant]
     Dates: start: 20180605, end: 20180605
  20. PEMETREXED. [Suspect]
     Active Substance: PEMETREXED
     Indication: NON-SMALL CELL LUNG CANCER METASTATIC
     Dosage: 23.8095 MG/M2 DAILY;
     Route: 042
     Dates: start: 20180228, end: 20180502
  21. MK-3475(PEMBROLIZUMAB) [Suspect]
     Active Substance: PEMBROLIZUMAB
     Indication: NON-SMALL CELL LUNG CANCER METASTATIC
     Route: 042
     Dates: start: 20180228, end: 20180502
  22. LOSEC [Concomitant]
     Active Substance: OMEPRAZOLE
     Dates: start: 20180531, end: 20180531
  23. SODIUM CHLORIDE. [Concomitant]
     Active Substance: SODIUM CHLORIDE
     Dates: start: 20180605, end: 20180605
  24. DEXAMETHASONE. [Concomitant]
     Active Substance: DEXAMETHASONE
     Dates: start: 20180530, end: 20180601
  25. STATOR [Concomitant]
     Route: 065
     Dates: start: 200101, end: 20180605
  26. AVILAC [Concomitant]
     Dates: start: 20180424, end: 20180605

REACTIONS (1)
  - Sepsis [Fatal]

NARRATIVE: CASE EVENT DATE: 20180605
